FAERS Safety Report 8695170 (Version 2)
Quarter: 2013Q1

REPORT INFORMATION
  Report Type: Spontaneous
  Country: US (occurrence: US)
  Receive Date: 20120731
  Receipt Date: 20130125
  Transmission Date: 20140127
  Serious: Yes (Hospitalization, Disabling, Other)
  Sender: FDA-Public Use
  Company Number: US-009507513-1207USA008780

PATIENT
  Sex: 0

DRUGS (2)
  1. NUVARING [Suspect]
     Indication: PRODUCT USED FOR UNKNOWN INDICATION
     Dosage: UNK
     Route: 067
     Dates: start: 201002, end: 201203
  2. NUVARING [Suspect]
     Dosage: UNK
     Route: 067
     Dates: start: 2007, end: 2008

REACTIONS (4)
  - Pulmonary embolism [Unknown]
  - Delivery [Unknown]
  - Migraine [Unknown]
  - Exposure during pregnancy [Recovered/Resolved]
